FAERS Safety Report 18656149 (Version 1)
Quarter: 2020Q4

REPORT INFORMATION
  Report Type: Spontaneous
  Country: US (occurrence: US)
  Receive Date: 20201223
  Receipt Date: 20201223
  Transmission Date: 20210114
  Serious: Yes (Other)
  Sender: FDA-Public Use
  Company Number: US-ABBVIE-20P-163-3705518-00

PATIENT
  Age: 73 Year
  Sex: Male

DRUGS (1)
  1. LEUPRORELIN [Suspect]
     Active Substance: LEUPROLIDE ACETATE
     Indication: ANDROGEN THERAPY
     Route: 065

REACTIONS (2)
  - Blood testosterone decreased [Recovering/Resolving]
  - Prostatic specific antigen abnormal [Recovering/Resolving]
